FAERS Safety Report 15291122 (Version 1)
Quarter: 2018Q3

REPORT INFORMATION
  Report Type: Spontaneous
  Country: HR (occurrence: HR)
  Receive Date: 20180817
  Receipt Date: 20180817
  Transmission Date: 20181010
  Serious: Yes (Other)
  Sender: FDA-Public Use
  Company Number: HR-TEVA-2018-HR-943514

PATIENT
  Age: 62 Year
  Sex: Male
  Weight: 78 kg

DRUGS (3)
  1. DEXAMETHASON KRKA [Concomitant]
     Active Substance: DEXAMETHASONE
     Indication: RECTOSIGMOID CANCER
     Dosage: 8 MILLIGRAM DAILY;
     Route: 042
     Dates: start: 20180712, end: 20180712
  2. BLOCULCER [Concomitant]
     Indication: RECTOSIGMOID CANCER
     Dosage: 50 MILLIGRAM DAILY;
     Route: 042
     Dates: start: 20180712, end: 20180712
  3. OXALIPLATIN PLIVA [Suspect]
     Active Substance: OXALIPLATIN
     Indication: RECTOSIGMOID CANCER
     Dosage: 250 MILLIGRAM DAILY;
     Route: 041
     Dates: start: 20180712, end: 20180712

REACTIONS (2)
  - Choking [Not Recovered/Not Resolved]
  - Pain [Not Recovered/Not Resolved]

NARRATIVE: CASE EVENT DATE: 20180712
